FAERS Safety Report 20577150 (Version 1)
Quarter: 2022Q1

REPORT INFORMATION
  Report Type: Spontaneous
  Country: DE (occurrence: DE)
  Receive Date: 20220310
  Receipt Date: 20220310
  Transmission Date: 20220423
  Serious: Yes (Other)
  Sender: FDA-Public Use
  Company Number: DE-002147023-PHNU2004DE02165

PATIENT
  Age: 60 Year
  Sex: Female

DRUGS (3)
  1. CLOZAPINE [Interacting]
     Active Substance: CLOZAPINE
     Indication: Schizophrenia
     Dosage: UNKNOWN
     Route: 048
  2. CLOZAPINE [Interacting]
     Active Substance: CLOZAPINE
     Dosage: 400 MILLIGRAM, QD
     Route: 048
  3. DOXYCYCLINE [Interacting]
     Active Substance: DOXYCYCLINE
     Indication: Antibiotic prophylaxis
     Dosage: UNKNOWN
     Route: 065
     Dates: start: 200406, end: 200406

REACTIONS (2)
  - Psychotic disorder [Recovered/Resolved]
  - Inhibitory drug interaction [Recovered/Resolved]

NARRATIVE: CASE EVENT DATE: 20040601
